FAERS Safety Report 14157146 (Version 1)
Quarter: 2017Q4

REPORT INFORMATION
  Report Type: Spontaneous
  Country: US (occurrence: US)
  Receive Date: 20171103
  Receipt Date: 20171103
  Transmission Date: 20180321
  Serious: Yes (Other)
  Sender: FDA-Public Use
  Company Number: US-PFIZER INC-2017469660

PATIENT
  Sex: Male

DRUGS (3)
  1. LYRICA [Suspect]
     Active Substance: PREGABALIN
     Dosage: 150 MG, (CAPSULE 150MG/AT 150/ONE TO TWO TIMES A DAY)
     Route: 048
  2. ASPIRIN. [Concomitant]
     Active Substance: ASPIRIN
     Indication: ROUTINE HEALTH MAINTENANCE
     Dosage: 82 MG, UNK
  3. LYRICA [Suspect]
     Active Substance: PREGABALIN
     Indication: EPILEPSY
     Dosage: 50 MG, (STARTED WITH THE 50MG)
     Route: 048
     Dates: start: 2005

REACTIONS (3)
  - Trigger finger [Unknown]
  - Gait disturbance [Unknown]
  - Intermittent claudication [Unknown]
